FAERS Safety Report 5114926-7 (Version None)
Quarter: 2006Q3

REPORT INFORMATION
  Report Type: 
  Country: None (occurrence: None)
  Receive Date: 20060922
  Receipt Date: 20060922
  Transmission Date: 20061208
  Serious: No
  Sender: FDA-Public Use
  Company Number: None

PATIENT
  Sex: Male
  Weight: 61.2356 kg

DRUGS (3)
  1. WART + MOLE VANISH INTERNET (WARTMOLE VANISH.COM) [Suspect]
     Indication: ANOGENITAL WARTS
     Dates: start: 20060101
  2. WART + MOLE VANISH INTERNET (WARTMOLE VANISH.COM) [Suspect]
     Indication: MELANOCYTIC NAEVUS
     Dates: start: 20060101
  3. WART + MOLE VANISH INTERNET (WARTMOLE VANISH.COM) [Suspect]
     Indication: PENIS DISORDER
     Dates: start: 20060101

REACTIONS (2)
  - MALIGNANT MELANOMA [None]
  - SCAR [None]
